FAERS Safety Report 24443228 (Version 1)
Quarter: 2024Q4

REPORT INFORMATION
  Report Type: Spontaneous
  Country: CA (occurrence: CA)
  Receive Date: 20241016
  Receipt Date: 20241016
  Transmission Date: 20250115
  Serious: Yes (Other)
  Sender: CHATTEM
  Company Number: CA-OPELLA-2024OHG034717

PATIENT
  Age: 16 Year
  Sex: Female

DRUGS (1)
  1. SELENIUM SULFIDE [Suspect]
     Active Substance: SELENIUM SULFIDE
     Indication: Product used for unknown indication
     Route: 061
     Dates: start: 20240930

REACTIONS (6)
  - Visual impairment [Recovered/Resolved with Sequelae]
  - Chemical burns of eye [Unknown]
  - Pain [Unknown]
  - Corneal abrasion [Unknown]
  - Scar [Unknown]
  - Accidental exposure to product [Unknown]

NARRATIVE: CASE EVENT DATE: 20240930
